FAERS Safety Report 9135681 (Version 2)
Quarter: 2013Q4

REPORT INFORMATION
  Report Type: Report from Study
  Country: NL (occurrence: NL)
  Receive Date: 20130304
  Receipt Date: 20131106
  Transmission Date: 20140711
  Serious: Yes (Hospitalization)
  Sender: FDA-Public Use
  Company Number: PHHY2013NL019380

PATIENT
  Sex: Male

DRUGS (1)
  1. SOMATROPIN [Suspect]
     Dosage: 0.3 MG, UNK
     Route: 058
     Dates: start: 20080118

REACTIONS (2)
  - Adrenocortical insufficiency acute [Recovered/Resolved]
  - Diarrhoea [Recovered/Resolved]
